FAERS Safety Report 15992081 (Version 1)
Quarter: 2019Q1

REPORT INFORMATION
  Report Type: Spontaneous
  Country: US (occurrence: US)
  Receive Date: 20190221
  Receipt Date: 20190221
  Transmission Date: 20190418
  Serious: Yes (Hospitalization, Other)
  Sender: FDA-Public Use
  Company Number: US-SEBELA IRELAND LIMITED-2019SEB00031

PATIENT
  Sex: Female

DRUGS (6)
  1. UNSPECIFIED INSULIN [Suspect]
     Active Substance: INSULIN NOS
  2. IMURAN [Suspect]
     Active Substance: AZATHIOPRINE
     Indication: DERMATOMYOSITIS
     Dosage: UNK
  3. IMURAN [Suspect]
     Active Substance: AZATHIOPRINE
     Dosage: DOUBLE DOSE
  4. VORICONAZOLE. [Suspect]
     Active Substance: VORICONAZOLE
     Indication: PNEUMONIA
     Dosage: 200 MG, 2X/DAY
     Route: 048
     Dates: start: 20170627
  5. XARELTO [Concomitant]
     Active Substance: RIVAROXABAN
     Dosage: 5 MG, 1X/DAY
     Route: 048
  6. PREDNISONE. [Suspect]
     Active Substance: PREDNISONE

REACTIONS (9)
  - Pneumonia fungal [Recovered/Resolved]
  - Bronchitis [Not Recovered/Not Resolved]
  - Visual impairment [Not Recovered/Not Resolved]
  - Off label use [Unknown]
  - Fungal infection [Recovered/Resolved]
  - Blood glucose abnormal [Recovering/Resolving]
  - Blood glucose increased [Unknown]
  - Heart rate decreased [Unknown]
  - Blood glucose decreased [Unknown]

NARRATIVE: CASE EVENT DATE: 20170730
